FAERS Safety Report 9450579 (Version 1)
Quarter: 2013Q3

REPORT INFORMATION
  Report Type: Spontaneous
  Country: US (occurrence: US)
  Receive Date: 20130809
  Receipt Date: 20130809
  Transmission Date: 20140515
  Serious: Yes (Death)
  Sender: FDA-Public Use
  Company Number: US-GENZYME-CAMP-1003062

PATIENT
  Age: 45 Year
  Sex: Male

DRUGS (3)
  1. CAMPATH [Suspect]
     Indication: CHRONIC LYMPHOCYTIC LEUKAEMIA
     Dosage: 3 MG, UNK
     Route: 065
     Dates: start: 20121210
  2. CAMPATH [Suspect]
     Dosage: 10 MG, UNK
     Route: 065
  3. CAMPATH [Suspect]
     Dosage: 30 MG, 3X/W
     Route: 065
     Dates: end: 20130501

REACTIONS (1)
  - Death [Fatal]
